FAERS Safety Report 9440405 (Version 1)
Quarter: 2013Q3

REPORT INFORMATION
  Report Type: Spontaneous
  Country: PH (occurrence: PH)
  Receive Date: 20130805
  Receipt Date: 20130805
  Transmission Date: 20140515
  Serious: Yes (Hospitalization)
  Sender: FDA-Public Use
  Company Number: PH-B.I. PHARMACEUTICALS,INC./RIDGEFIELD-2013-BI-22759RP

PATIENT
  Age: 73 Year
  Sex: Female

DRUGS (4)
  1. PRADAXA [Suspect]
     Indication: CEREBROVASCULAR ACCIDENT PROPHYLAXIS
     Dosage: 220 MG
     Route: 048
     Dates: start: 201207, end: 201307
  2. PRADAXA [Suspect]
     Indication: ATRIAL FIBRILLATION
  3. GALVUSMET [Concomitant]
  4. MICARDIS [Concomitant]

REACTIONS (1)
  - Haemoptysis [Recovered/Resolved]
